FAERS Safety Report 5759371-6 (Version None)
Quarter: 2008Q2

REPORT INFORMATION
  Report Type: 
  Country: None (occurrence: None)
  Receive Date: 20080605
  Receipt Date: 20080529
  Transmission Date: 20081010
  Serious: Yes (Hospitalization)
  Sender: FDA-Public Use
  Company Number: FR-JNJFOC-20080506235

PATIENT
  Sex: Male

DRUGS (4)
  1. IMODIUM [Suspect]
     Indication: DIARRHOEA
     Route: 048
  2. AUGMENTIN '125' [Suspect]
     Indication: INFLUENZA
     Route: 048
  3. DAFALGAN [Suspect]
     Indication: INFLUENZA
     Route: 048
  4. SMECTA [Suspect]
     Indication: DIARRHOEA
     Route: 048

REACTIONS (1)
  - HEPATITIS [None]
